FAERS Safety Report 7911119-2 (Version None)
Quarter: 2011Q4

REPORT INFORMATION
  Report Type: 
  Country: None (occurrence: None)
  Receive Date: 20111109
  Receipt Date: 20111028
  Transmission Date: 20120403
  Serious: Yes (Hospitalization)
  Sender: FDA-Public Use
  Company Number: AXC-2011-000469

PATIENT
  Age: 58 Year
  Sex: Male

DRUGS (10)
  1. EZETIMIBE [Suspect]
     Indication: PRODUCT USED FOR UNKNOWN INDICATION
     Dates: start: 20090701
  2. EZETIMIBE [Suspect]
     Indication: PRODUCT USED FOR UNKNOWN INDICATION
     Dates: start: 20080101
  3. URSODIOL [Suspect]
     Indication: AUTOIMMUNE HEPATITIS
     Dates: start: 20090101
  4. ATORVASTATIN CALCIUM [Suspect]
     Indication: PRODUCT USED FOR UNKNOWN INDICATION
     Dosage: 40 MG, QD,
     Dates: start: 20020101, end: 20071201
  5. ENALAPRIL MALEATE [Suspect]
     Indication: PRODUCT USED FOR UNKNOWN INDICATION
     Dates: start: 20080101
  6. GLIMEPIRIDE [Suspect]
     Indication: PRODUCT USED FOR UNKNOWN INDICATION
     Dates: start: 20020101, end: 20071201
  7. DOXAZOSIN MESYLATE [Suspect]
     Indication: PRODUCT USED FOR UNKNOWN INDICATION
     Dates: start: 20090701
  8. ENALAPRIL MALEATE AND HYDROCHLOROTHIAZIDE [Suspect]
     Indication: PRODUCT USED FOR UNKNOWN INDICATION
     Dosage: 20 + 12.5 MG, QD,
     Dates: start: 20020101, end: 20071201
  9. METFORMIN HCL [Suspect]
     Indication: PRODUCT USED FOR UNKNOWN INDICATION
     Dates: start: 20090701
  10. AMLODIPINE [Suspect]
     Indication: PRODUCT USED FOR UNKNOWN INDICATION
     Dates: start: 20090701

REACTIONS (4)
  - AUTOIMMUNE HEPATITIS [None]
  - SMOOTH MUSCLE ANTIBODY POSITIVE [None]
  - ANTINUCLEAR ANTIBODY POSITIVE [None]
  - HEPATIC FIBROSIS [None]
